FAERS Safety Report 4909318-7 (Version None)
Quarter: 2006Q1

REPORT INFORMATION
  Report Type: 
  Country: None (occurrence: None)
  Receive Date: 20060210
  Receipt Date: 20060210
  Transmission Date: 20060701
  Serious: Yes (Hospitalization)
  Sender: FDA-Public Use
  Company Number: None

PATIENT
  Age: 66 Year
  Sex: Male
  Weight: 143.6 kg

DRUGS (19)
  1. GENTAMICIN [Suspect]
     Indication: PNEUMONIA
     Dosage: 480 MG Q24H IV
     Route: 042
     Dates: start: 20060111, end: 20060115
  2. GENTAMICIN [Suspect]
     Indication: SEPSIS
     Dosage: 400MG Q24H IV
     Route: 042
     Dates: start: 20060119, end: 20060121
  3. ALBUTEROL [Concomitant]
  4. DIAZEPAM [Concomitant]
  5. DILTIAZEM HCL [Concomitant]
  6. DOCUSATE LIQUID [Concomitant]
  7. FENTANYL [Concomitant]
  8. GABAPENTIN [Concomitant]
  9. GATIFLOXACIN [Concomitant]
  10. GENTAMICIN [Concomitant]
  11. HALOPERIDOL [Concomitant]
  12. HEPARIN [Concomitant]
  13. REGULAR INSULIN [Concomitant]
  14. IPRATROPIUM BROMIDE [Concomitant]
  15. METOPROLOL [Concomitant]
  16. MIDAZOLAM [Concomitant]
  17. OMEPRAZOLE [Concomitant]
  18. PREDNISONE [Concomitant]
  19. VANCOMYCIN [Concomitant]

REACTIONS (3)
  - BODY TEMPERATURE INCREASED [None]
  - RENAL FAILURE ACUTE [None]
  - RENAL TUBULAR NECROSIS [None]
